FAERS Safety Report 21939193 (Version 1)
Quarter: 2023Q1

REPORT INFORMATION
  Report Type: Report from Study
  Country: US (occurrence: US)
  Receive Date: 20230201
  Receipt Date: 20230201
  Transmission Date: 20230418
  Serious: Yes (Other)
  Sender: FDA-Public Use
  Company Number: US-EXELIXIS-CABO-22055386

PATIENT
  Age: 67 Year
  Sex: Male
  Weight: 82.993 kg

DRUGS (13)
  1. CABOMETYX [Suspect]
     Active Substance: CABOZANTINIB S-MALATE
     Indication: Renal cancer
     Dosage: 40 MG, QD
     Route: 048
     Dates: start: 20220524, end: 20220824
  2. CABOMETYX [Suspect]
     Active Substance: CABOZANTINIB S-MALATE
     Dosage: 20 MG
     Route: 048
     Dates: start: 202208
  3. VITAMINS [Concomitant]
     Active Substance: VITAMINS
  4. CHONDROITIN SULFATE A\GLUCOSAMINE [Concomitant]
     Active Substance: CHONDROITIN SULFATE A\GLUCOSAMINE
  5. DICYCLOMINE HYDROCHLORIDE [Concomitant]
     Active Substance: DICYCLOMINE HYDROCHLORIDE
  6. SYMBICORT [Concomitant]
     Active Substance: BUDESONIDE\FORMOTEROL FUMARATE DIHYDRATE
  7. AMLODIPINE BESYLATE [Concomitant]
     Active Substance: AMLODIPINE BESYLATE
  8. PREDNISONE [Concomitant]
     Active Substance: PREDNISONE
  9. VITAMIN C [Concomitant]
     Active Substance: ASCORBIC ACID
  10. LYSINE [Concomitant]
     Active Substance: LYSINE
  11. CARVEDILOL [Concomitant]
     Active Substance: CARVEDILOL
  12. VITAMIN D3 [Concomitant]
     Active Substance: CHOLECALCIFEROL
  13. MONTELUKAST SODIUM [Concomitant]
     Active Substance: MONTELUKAST SODIUM

REACTIONS (5)
  - Weight decreased [Unknown]
  - Cardiac disorder [Unknown]
  - COVID-19 [Unknown]
  - Decreased appetite [Unknown]
  - Taste disorder [Unknown]

NARRATIVE: CASE EVENT DATE: 20220805
